FAERS Safety Report 23089850 (Version 1)
Quarter: 2023Q4

REPORT INFORMATION
  Report Type: Spontaneous
  Country: US (occurrence: None)
  Receive Date: 20231019
  Receipt Date: 20231019
  Transmission Date: 20240110
  Serious: Yes (Hospitalization)
  Sender: FDA-Public Use
  Company Number: None

PATIENT
  Age: 60 Year
  Sex: Male
  Weight: 75 kg

DRUGS (1)
  1. RIVAROXABAN [Suspect]
     Active Substance: RIVAROXABAN
     Dates: start: 20220501, end: 20230207

REACTIONS (4)
  - Transient ischaemic attack [None]
  - Treatment failure [None]
  - Cerebrovascular accident [None]
  - Atrial fibrillation [None]

NARRATIVE: CASE EVENT DATE: 20230207
